FAERS Safety Report 10050943 (Version 2)
Quarter: 2014Q2

REPORT INFORMATION
  Report Type: Spontaneous
  Country: JP (occurrence: JP)
  Receive Date: 20140401
  Receipt Date: 20140401
  Transmission Date: 20141212
  Serious: Yes (Life-Threatening)
  Sender: FDA-Public Use
  Company Number: JP-SANOFI-AVENTIS-2013SA035750

PATIENT
  Age: 74 Year
  Sex: Female
  Weight: 49 kg

DRUGS (27)
  1. ELPLAT [Suspect]
     Indication: COLON CANCER
     Route: 041
     Dates: start: 20120919, end: 20120919
  2. ELPLAT [Suspect]
     Indication: RECTAL CANCER
     Route: 041
     Dates: start: 20120919, end: 20120919
  3. ELPLAT [Suspect]
     Indication: COLON CANCER
     Route: 041
     Dates: start: 20120827, end: 20120827
  4. ELPLAT [Suspect]
     Indication: RECTAL CANCER
     Route: 041
     Dates: start: 20120827, end: 20120827
  5. ELPLAT [Suspect]
     Indication: COLON CANCER
     Route: 041
     Dates: start: 20121003, end: 20121003
  6. ELPLAT [Suspect]
     Indication: RECTAL CANCER
     Route: 041
     Dates: start: 20121003, end: 20121003
  7. ELPLAT [Suspect]
     Indication: COLON CANCER
     Route: 041
     Dates: start: 20121017, end: 20121017
  8. ELPLAT [Suspect]
     Indication: RECTAL CANCER
     Route: 041
     Dates: start: 20121017, end: 20121017
  9. CALCIUM LEVOFOLINATE [Suspect]
     Indication: COLON CANCER
     Route: 065
     Dates: start: 20120827
  10. CALCIUM LEVOFOLINATE [Suspect]
     Indication: COLON CANCER
     Route: 041
     Dates: start: 20120919, end: 20120920
  11. CALCIUM LEVOFOLINATE [Suspect]
     Indication: COLON CANCER
     Route: 041
     Dates: start: 20121003, end: 20121004
  12. CALCIUM LEVOFOLINATE [Suspect]
     Indication: COLON CANCER
     Route: 041
     Dates: start: 20121017, end: 20121018
  13. 5-FU [Suspect]
     Indication: COLON CANCER
     Route: 040
     Dates: start: 20120827, end: 20120827
  14. 5-FU [Suspect]
     Indication: COLON CANCER
     Route: 041
     Dates: start: 20120827, end: 20120827
  15. 5-FU [Suspect]
     Indication: COLON CANCER
     Route: 040
     Dates: start: 20120919, end: 20120919
  16. 5-FU [Suspect]
     Indication: COLON CANCER
     Route: 041
     Dates: start: 20120919, end: 20120919
  17. 5-FU [Suspect]
     Indication: COLON CANCER
     Route: 040
     Dates: start: 20121003, end: 20121003
  18. 5-FU [Suspect]
     Indication: COLON CANCER
     Route: 041
     Dates: start: 20121003, end: 20121003
  19. 5-FU [Suspect]
     Indication: COLON CANCER
     Route: 040
     Dates: start: 20121017, end: 20121017
  20. 5-FU [Suspect]
     Indication: COLON CANCER
     Route: 041
     Dates: start: 20121017, end: 20121017
  21. PREDONINE [Concomitant]
     Dates: start: 20130226, end: 20130311
  22. KYTRIL [Concomitant]
     Dates: start: 20120827, end: 20121017
  23. DECADRON [Concomitant]
     Dates: start: 20120827, end: 20121017
  24. GRAN [Concomitant]
     Dates: start: 20121031
  25. PLATELETS, HUMAN BLOOD [Concomitant]
     Dates: start: 20121122, end: 20121122
  26. LANSAP [Concomitant]
     Route: 048
     Dates: start: 20130212, end: 20130218
  27. REVOLADE [Concomitant]
     Dates: start: 20130319

REACTIONS (3)
  - Thrombocytopenia [Recovered/Resolved]
  - Immune thrombocytopenic purpura [Recovered/Resolved]
  - Neutrophil count decreased [Unknown]
